FAERS Safety Report 7206139-X (Version None)
Quarter: 2011Q1

REPORT INFORMATION
  Report Type: 
  Country: None (occurrence: None)
  Receive Date: 20110103
  Receipt Date: 20101104
  Transmission Date: 20110831
  Serious: Yes (Other)
  Sender: FDA-Public Use
  Company Number: US-PFIZER INC-2010107634

PATIENT
  Sex: Female
  Weight: 125 kg

DRUGS (7)
  1. MEDROXYPROGESTERONE ACETATE [Suspect]
     Dosage: 20 MG, 1X/DAY
     Route: 048
  2. HYDROCHLOROTHIAZIDE [Concomitant]
     Dosage: UNK
  3. MEDROXYPROGESTERONE ACETATE [Suspect]
     Dosage: 100 MG, 3X/DAY
     Route: 048
  4. PREMARIN [Suspect]
     Dosage: 1.25 MG, 1X/DAY
     Route: 048
     Dates: start: 20000101
  5. MEDROXYPROGESTERONE ACETATE [Suspect]
     Indication: MENOPAUSAL SYMPTOMS
     Dosage: 30 MG, 1X/DAY
     Route: 048
     Dates: start: 20000101
  6. LASIX [Concomitant]
     Dosage: UNK
  7. MEDROXYPROGESTERONE ACETATE [Suspect]
     Dosage: 100 MG, 1X/DAY
     Route: 048

REACTIONS (8)
  - CHONDROPATHY [None]
  - INAPPROPRIATE SCHEDULE OF DRUG ADMINISTRATION [None]
  - ARTHRALGIA [None]
  - BLOOD URINE PRESENT [None]
  - ANXIETY [None]
  - HYPERSENSITIVITY [None]
  - VAGINAL HAEMORRHAGE [None]
  - DRUG INEFFECTIVE [None]
